FAERS Safety Report 16426611 (Version 1)
Quarter: 2019Q3

REPORT INFORMATION
  Report Type: Spontaneous
  Country: US (occurrence: US)
  Receive Date: 20190612
  Receipt Date: 20190612
  Transmission Date: 20191004
  Serious: No
  Sender: FDA-Public Use
  Company Number: None

PATIENT
  Age: 48 Year
  Weight: 58.05 kg

DRUGS (3)
  1. ORTHO CYCLEN [Concomitant]
     Active Substance: ETHINYL ESTRADIOL\NORGESTIMATE
  2. MOTRIN [Concomitant]
     Active Substance: IBUPROFEN
  3. AJOVY [Suspect]
     Active Substance: FREMANEZUMAB-VFRM
     Indication: MIGRAINE PROPHYLAXIS
     Dosage: ?          OTHER FREQUENCY:MONTHLY INJECTION;OTHER ROUTE:INJECTION TO FATTY AREA?
     Dates: start: 20181001, end: 20190612

REACTIONS (2)
  - Weight increased [None]
  - Anxiety [None]
